FAERS Safety Report 5352309-5 (Version None)
Quarter: 2007Q2

REPORT INFORMATION
  Report Type: 
  Country: None (occurrence: None)
  Receive Date: 20070607
  Receipt Date: 20070607
  Transmission Date: 20071010
  Serious: Yes (Other)
  Sender: FDA-Public Use
  Company Number: None

PATIENT
  Age: 67 Year
  Sex: Male
  Weight: 86.1834 kg

DRUGS (2)
  1. PSEUDOEPHEDRINE HCL AND TRIPROLIDINE HCL [Suspect]
     Indication: ASTHMA
     Dosage: 1 TABLET THREE TIMES DAILY PO
     Route: 048
     Dates: start: 20070520, end: 20070530
  2. PSEUDOEPHEDRINE HCL AND TRIPROLIDINE HCL [Suspect]
     Indication: HYPERSENSITIVITY
     Dosage: 1 TABLET THREE TIMES DAILY PO
     Route: 048
     Dates: start: 20070520, end: 20070530

REACTIONS (4)
  - DYSURIA [None]
  - HEART RATE INCREASED [None]
  - INSOMNIA [None]
  - VISUAL DISTURBANCE [None]
